FAERS Safety Report 9011825 (Version 1)
Quarter: 2012Q4

REPORT INFORMATION
  Report Type: Spontaneous
  Country: US (occurrence: None)
  Receive Date: 20121228
  Receipt Date: 20121228
  Transmission Date: 20130627
  Serious: Yes (Hospitalization)
  Sender: FDA-Public Use
  Company Number: 20120769

PATIENT
  Age: 54 Year
  Sex: Female

DRUGS (12)
  1. ZIDOVUDINE [Suspect]
     Indication: HIV INFECTION
  2. INDINAVIR [Suspect]
     Indication: HIV INFECTION
  3. STAVUDINE [Suspect]
     Indication: HIV INFECTION
  4. DIDANOSINE [Suspect]
     Indication: HIV INFECTION
  5. RITONAVIR/LOPINAVIR [Suspect]
     Indication: HIV INFECTION
  6. NELFINAVIR [Suspect]
     Indication: HIV INFECTION
  7. SAQUINAVIR [Suspect]
     Indication: HIV INFECTION
  8. NEVIRAPINE [Suspect]
     Indication: HIV INFECTION
  9. TENOFOVIR [Suspect]
     Indication: HIV INFECTION
  10. EMTRICITABINE [Suspect]
     Indication: HIV INFECTION
  11. LAMIVUDINE [Suspect]
     Indication: HIV INFECTION
  12. HYDROXYCARBAMIDE [Suspect]
     Indication: HIV INFECTION

REACTIONS (6)
  - Myocardial infarction [None]
  - Coronary artery disease [None]
  - White blood cell count increased [None]
  - Blood potassium decreased [None]
  - Carbon dioxide decreased [None]
  - Blood phosphorus decreased [None]
